FAERS Safety Report 8835086 (Version 3)
Quarter: 2012Q4

REPORT INFORMATION
  Report Type: 
  Country: US (occurrence: US)
  Receive Date: 20121010
  Receipt Date: 20121207
  Transmission Date: 20130627
  Serious: No
  Sender: FDA-Public Use
  Company Number: US-VERTEX PHARMACEUTICAL INC.-2012-022541

PATIENT
  Age: 52 Year
  Sex: Female
  Weight: 118 kg

DRUGS (6)
  1. VX-950 (TELAPREVIR) [Suspect]
     Indication: HEPATITIS C
     Dosage: 750 mg, tid
     Route: 048
     Dates: start: 20120903, end: 20121126
  2. PEGASYS [Concomitant]
     Indication: HEPATITIS C
     Dosage: 180 ?g,weekly
     Route: 058
     Dates: start: 20120903
  3. RIBAPAK [Concomitant]
     Indication: HEPATITIS C
     Dosage: 600mg AM/ 600mg PM
     Route: 048
     Dates: start: 20120903
  4. BYSTOLIC [Concomitant]
     Dosage: 10 mg, qd
     Route: 048
  5. MOTRIN IB [Concomitant]
     Dosage: 1 DF, qd
     Route: 048
  6. PRILOSEC                           /00661201/ [Concomitant]
     Dosage: 1 DF, qd
     Route: 048

REACTIONS (10)
  - Amnesia [Unknown]
  - Insomnia [Unknown]
  - Confusional state [Unknown]
  - Headache [Unknown]
  - Arthralgia [Unknown]
  - Depressed mood [Unknown]
  - Fatigue [Unknown]
  - Vomiting [Unknown]
  - Nausea [Unknown]
  - Pruritus [Unknown]
